FAERS Safety Report 14012913 (Version 1)
Quarter: 2017Q3

REPORT INFORMATION
  Report Type: Spontaneous
  Country: US (occurrence: US)
  Receive Date: 20170926
  Receipt Date: 20170926
  Transmission Date: 20171128
  Serious: No
  Sender: FDA-Public Use
  Company Number: US-GLAXOSMITHKLINE-US2017146185

PATIENT
  Age: 47 Year
  Sex: Female
  Weight: 88 kg

DRUGS (1)
  1. EQUATE NICOTINE [Suspect]
     Active Substance: NICOTINE
     Indication: SMOKING CESSATION THERAPY
     Dosage: 21 MG, 1D
     Dates: end: 20170915

REACTIONS (4)
  - Application site erythema [Unknown]
  - Application site papules [Unknown]
  - Application site burn [Unknown]
  - Application site reaction [Unknown]

NARRATIVE: CASE EVENT DATE: 20170918
